FAERS Safety Report 4999407-3 (Version None)
Quarter: 2006Q2

REPORT INFORMATION
  Report Type: 
  Country: None (occurrence: None)
  Receive Date: 20060511
  Receipt Date: 20060502
  Transmission Date: 20061013
  Serious: Yes (Hospitalization)
  Sender: FDA-Public Use
  Company Number: IT-ROCHE-446865

PATIENT
  Age: 73 Year
  Sex: Female

DRUGS (1)
  1. ROCEPHIN [Suspect]
     Indication: BRONCHITIS
     Dosage: FORM REPORTED AS VIAL.
     Route: 030
     Dates: start: 20060129, end: 20060203

REACTIONS (2)
  - RASH [None]
  - URTICARIA [None]
